FAERS Safety Report 19921624 (Version 1)
Quarter: 2021Q4

REPORT INFORMATION
  Report Type: Spontaneous
  Country: IT (occurrence: IT)
  Receive Date: 20211006
  Receipt Date: 20211006
  Transmission Date: 20220304
  Serious: Yes (Hospitalization)
  Sender: FDA-Public Use
  Company Number: None

PATIENT
  Age: 41 Year
  Sex: Female

DRUGS (1)
  1. LEVOCETIRIZINE [Suspect]
     Active Substance: LEVOCETIRIZINE
     Indication: Rhinitis allergic
     Dosage: UNK
     Route: 048

REACTIONS (1)
  - Paraesthesia oral [Recovering/Resolving]

NARRATIVE: CASE EVENT DATE: 20210821
